FAERS Safety Report 7372551-1 (Version None)
Quarter: 2011Q1

REPORT INFORMATION
  Report Type: 
  Country: None (occurrence: None)
  Receive Date: 20110315
  Receipt Date: 20110301
  Transmission Date: 20110831
  Serious: Yes (Hospitalization)
  Sender: FDA-Public Use
  Company Number: DSJ-2011-04536

PATIENT
  Age: 59 Year
  Sex: Female

DRUGS (4)
  1. BENICAR HCT [Suspect]
     Indication: HYPERTENSION
     Dosage: 20/12.5 MG (1 IN 1 D),PER ORAL ; 40/12.5 MG (1 IN 1 D),PER ORAL
     Route: 048
     Dates: start: 20100909, end: 20101101
  2. BENICAR HCT [Suspect]
     Indication: HYPERTENSION
     Dosage: 20/12.5 MG (1 IN 1 D),PER ORAL ; 40/12.5 MG (1 IN 1 D),PER ORAL
     Route: 048
     Dates: start: 20101101
  3. SIMVASTATIN [Suspect]
     Indication: HYPERCHOLESTEROLAEMIA
     Dosage: 40 MG 1 IN 1 D, PER ORAL
     Dates: start: 20100901
  4. SAXAGLIPTIN(SAXAGLIPTIN)(SAXAGLIPTIN) [Suspect]
     Indication: DIABETES MELLITUS
     Dosage: 5 MG(5MG, 1 N 1D, PER ORAL
     Dates: start: 20100901

REACTIONS (3)
  - DRUG INEFFECTIVE [None]
  - SURGERY [None]
  - BLOOD PRESSURE SYSTOLIC INCREASED [None]
